FAERS Safety Report 22817272 (Version 2)
Quarter: 2023Q4

REPORT INFORMATION
  Report Type: Spontaneous
  Country: IT (occurrence: IT)
  Receive Date: 20230812
  Receipt Date: 20231102
  Transmission Date: 20240110
  Serious: Yes (Life-Threatening, Hospitalization, Other)
  Sender: FDA-Public Use
  Company Number: IT-Merck Healthcare KGaA-2023466132

PATIENT
  Age: 64 Year
  Sex: Female

DRUGS (1)
  1. GLUCOPHAGE [Suspect]
     Active Substance: METFORMIN HYDROCHLORIDE
     Indication: Type 2 diabetes mellitus
     Route: 048

REACTIONS (7)
  - Respiratory failure [Recovered/Resolved with Sequelae]
  - Toxicity to various agents [Recovered/Resolved]
  - Renal failure [Recovered/Resolved]
  - Tracheal stenosis [Recovered/Resolved]
  - Dehydration [Recovered/Resolved]
  - Vomiting [Recovered/Resolved]
  - Diarrhoea [Recovered/Resolved]

NARRATIVE: CASE EVENT DATE: 20210429
